FAERS Safety Report 6335838-7 (Version None)
Quarter: 2009Q3

REPORT INFORMATION
  Report Type: 
  Country: None (occurrence: None)
  Receive Date: 20090828
  Receipt Date: 20090813
  Transmission Date: 20100115
  Serious: Yes (Hospitalization)
  Sender: FDA-Public Use
  Company Number: 8050763

PATIENT
  Age: 52 Year
  Sex: Female
  Weight: 44.5 kg

DRUGS (6)
  1. KEPPRA [Suspect]
     Dosage: 1500 MG 2/D
  2. EPILIM [Concomitant]
  3. DOMPERIDONE [Concomitant]
  4. DIAZEPAM [Concomitant]
  5. RECTAL DIAZEPAM RESCUE MEDICINE [Concomitant]
  6. PHENYTOIN [Concomitant]

REACTIONS (3)
  - COMPLEX PARTIAL SEIZURES [None]
  - GRAND MAL CONVULSION [None]
  - PETIT MAL EPILEPSY [None]
